FAERS Safety Report 7587693-5 (Version None)
Quarter: 2011Q3

REPORT INFORMATION
  Report Type: 
  Country: None (occurrence: None)
  Receive Date: 20110704
  Receipt Date: 20110629
  Transmission Date: 20111222
  Serious: Yes (Hospitalization, Other)
  Sender: FDA-Public Use
  Company Number: FR-SP-2011-03881

PATIENT
  Sex: Male

DRUGS (5)
  1. AZILECT [Concomitant]
  2. CITALOPRAM [Concomitant]
  3. KARDEGIC (LYSINE ACETYLSALICYLATE) [Concomitant]
  4. SIFROL (PRAMIPEXOLE) [Concomitant]
  5. IMMUCYST [Suspect]
     Indication: BLADDER CANCER
     Route: 043
     Dates: start: 20100914, end: 20100928

REACTIONS (3)
  - ARTHRALGIA [None]
  - PAIN [None]
  - POLYARTHRITIS [None]
